FAERS Safety Report 9684708 (Version 1)
Quarter: 2013Q4

REPORT INFORMATION
  Report Type: Spontaneous
  Country: DE (occurrence: DE)
  Receive Date: 20131112
  Receipt Date: 20131112
  Transmission Date: 20140711
  Serious: Yes (Hospitalization)
  Sender: FDA-Public Use
  Company Number: DE-ASTRAZENECA-2013SE81470

PATIENT
  Age: 52 Year
  Sex: Female
  Weight: 88 kg

DRUGS (3)
  1. SEROQUEL [Suspect]
     Route: 048
     Dates: start: 20130423, end: 20130507
  2. NORTRIPTYLINE HYDROCHLORIDE [Suspect]
     Route: 048
     Dates: start: 20130413, end: 20130507
  3. NORTRIPTYLINE HYDROCHLORIDE [Suspect]
     Route: 048
     Dates: start: 20130403, end: 20130412

REACTIONS (2)
  - Atrial fibrillation [Recovered/Resolved]
  - Dyspnoea exertional [Recovered/Resolved]
